FAERS Safety Report 21536784 (Version 1)
Quarter: 2022Q4

REPORT INFORMATION
  Report Type: Spontaneous
  Country: US (occurrence: US)
  Receive Date: 20221101
  Receipt Date: 20221101
  Transmission Date: 20230113
  Serious: No
  Sender: FDA-Public Use
  Company Number: US-PERRIGO-21US030071

PATIENT

DRUGS (3)
  1. DOXYLAMINE SUCCINATE [Suspect]
     Active Substance: DOXYLAMINE SUCCINATE
     Indication: Product used for unknown indication
     Dosage: 25 MG, SINGLE
     Route: 048
     Dates: start: 20211019, end: 20211019
  2. DOXYLAMINE SUCCINATE [Suspect]
     Active Substance: DOXYLAMINE SUCCINATE
     Dosage: 50 MG, SINGLE
     Route: 048
     Dates: start: 20211020, end: 20211020
  3. DOXYLAMINE SUCCINATE [Suspect]
     Active Substance: DOXYLAMINE SUCCINATE
     Dosage: 75 MG, SINGLE
     Route: 048
     Dates: start: 20211021, end: 20211021

REACTIONS (2)
  - Drug ineffective [Unknown]
  - Overdose [Recovered/Resolved]

NARRATIVE: CASE EVENT DATE: 20211019
